FAERS Safety Report 19302830 (Version 1)
Quarter: 2021Q2

REPORT INFORMATION
  Report Type: Spontaneous
  Country: US (occurrence: US)
  Receive Date: 20210524
  Receipt Date: 20210524
  Transmission Date: 20210717
  Serious: Yes (Hospitalization, Other)
  Sender: FDA-Public Use
  Company Number: US-PURDUE-USA-2020-0183328

PATIENT
  Age: 31 Year
  Sex: Male

DRUGS (2)
  1. ROXICODONE [Suspect]
     Active Substance: OXYCODONE HYDROCHLORIDE
     Indication: PAIN
     Dosage: 30 MG, UNK
     Route: 065
     Dates: start: 2011
  2. OXYCODONE HYDROCHLORIDE (SIMILAR TO NDA 22?272) [Suspect]
     Active Substance: OXYCODONE HYDROCHLORIDE
     Indication: PRODUCT USED FOR UNKNOWN INDICATION
     Route: 048

REACTIONS (9)
  - Drug withdrawal syndrome [Unknown]
  - Drug dependence [Unknown]
  - Mental disorder [Unknown]
  - Overdose [Unknown]
  - Cerebral disorder [Unknown]
  - Emotional distress [Unknown]
  - Depression [Unknown]
  - Drug abuse [Unknown]
  - Anxiety [Unknown]
